FAERS Safety Report 4539558-0 (Version None)
Quarter: 2004Q4

REPORT INFORMATION
  Report Type: 
  Country: None (occurrence: None)
  Receive Date: 20041227
  Receipt Date: 20041227
  Transmission Date: 20050328
  Serious: Yes (Other)
  Sender: FDA-Public Use
  Company Number: None

PATIENT
  Sex: Male

DRUGS (1)
  1. ABILIFY [Suspect]
     Indication: SCHIZOPHRENIA
     Dosage: 10 MG PO HS
     Route: 048
     Dates: start: 20041113, end: 20041116

REACTIONS (3)
  - DYSPNOEA [None]
  - JOINT STIFFNESS [None]
  - MOVEMENT DISORDER [None]
